FAERS Safety Report 7465961-5 (Version None)
Quarter: 2011Q2

REPORT INFORMATION
  Report Type: 
  Country: None (occurrence: None)
  Receive Date: 20110509
  Receipt Date: 20100510
  Transmission Date: 20111010
  Serious: No
  Sender: FDA-Public Use
  Company Number: US-ALEXION-A201000210

PATIENT
  Sex: Male

DRUGS (18)
  1. PREDNISONE [Concomitant]
     Indication: PAROXYSMAL NOCTURNAL HAEMOGLOBINURIA
     Dosage: 20 MG, QD
     Route: 048
  2. FISH OIL [Concomitant]
     Dosage: 1200 MG, QD
     Route: 048
  3. SOLIRIS [Suspect]
     Indication: PAROXYSMAL NOCTURNAL HAEMOGLOBINURIA
     Dosage: 600 MG, QWKX4
     Route: 042
     Dates: start: 20081114
  4. TOPAMAX [Concomitant]
     Indication: HYPERTENSION
     Dosage: 25 MG, BID
     Route: 048
  5. NADOLOL [Concomitant]
     Indication: HYPERTENSION
     Dosage: UNK
     Route: 048
  6. VITAMIN C                          /00008001/ [Concomitant]
     Dosage: UNK
     Route: 048
  7. ZOLOFT [Concomitant]
     Dosage: 50 MG, QD
     Route: 048
  8. ASPIRIN [Concomitant]
     Dosage: 81 MG, QD
     Route: 048
  9. COQ10 [Concomitant]
     Dosage: 100 MG, QD
     Route: 048
  10. LOMOTIL                            /00034001/ [Concomitant]
     Indication: DIARRHOEA
     Dosage: UNK
     Route: 048
  11. ARIXTRA [Concomitant]
     Dosage: 7.5 MG, QD
     Route: 048
  12. HYDROCODONE BITARTRATE [Concomitant]
     Indication: PAIN
     Dosage: 10 MG, BID
     Route: 048
  13. OMEPRAZOLE [Concomitant]
     Indication: OESOPHAGEAL DISORDER
     Dosage: 20 MG, QD
     Route: 048
  14. SOLIRIS [Suspect]
     Dosage: 1200 MG, Q2W
     Route: 042
     Dates: start: 20100409
  15. VIDAZA [Concomitant]
     Dosage: UNK
  16. SOLIRIS [Suspect]
     Dosage: 900 MG, Q2WK
     Route: 042
     Dates: start: 20081212
  17. NEURONTIN [Concomitant]
     Dosage: 600 MG, QD
     Route: 048
  18. VITAMIN B12                        /00056201/ [Concomitant]
     Dosage: UNK
     Route: 048

REACTIONS (1)
  - BLOOD PRODUCT TRANSFUSION [None]
